FAERS Safety Report 7700108-9 (Version None)
Quarter: 2011Q3

REPORT INFORMATION
  Report Type: 
  Country: None (occurrence: None)
  Receive Date: 20110816
  Receipt Date: 20110809
  Transmission Date: 20111222
  Serious: Yes (Death)
  Sender: FDA-Public Use
  Company Number: JPI-P-015161

PATIENT
  Age: 3 Decade
  Sex: Female

DRUGS (1)
  1. XYREM [Suspect]
     Dosage: 4.5 GM (2.25 GM, 2 IN 1 D), ORAL
     Route: 048
     Dates: start: 20030924

REACTIONS (1)
  - DEATH [None]
